FAERS Safety Report 9815641 (Version 2)
Quarter: 2014Q1

REPORT INFORMATION
  Report Type: Report from Study
  Country: US (occurrence: US)
  Receive Date: 20140114
  Receipt Date: 20140114
  Transmission Date: 20141002
  Serious: Yes (Other)
  Sender: FDA-Public Use
  Company Number: US-ROCHE-769760

PATIENT
  Age: 32 Year
  Sex: Male

DRUGS (1)
  1. VISMODEGIB [Suspect]
     Indication: MEDULLOBLASTOMA
     Dosage: 150 MG, QD
     Route: 048

REACTIONS (1)
  - Hypophosphataemia [Unknown]
